FAERS Safety Report 10832123 (Version 3)
Quarter: 2015Q1

REPORT INFORMATION
  Report Type: Report from Study
  Country: PL (occurrence: PL)
  Receive Date: 20150219
  Receipt Date: 20150318
  Transmission Date: 20150721
  Serious: Yes (Death, Life-Threatening, Other)
  Sender: FDA-Public Use
  Company Number: PL-GLAXOSMITHKLINE-PL2015021366

PATIENT
  Age: 66 Year
  Sex: Male
  Weight: 107 kg

DRUGS (18)
  1. KALIPOZ [Concomitant]
     Active Substance: POTASSIUM CHLORIDE
     Indication: ELECTROLYTE IMBALANCE
     Dosage: 391 MG, BID
     Route: 048
     Dates: start: 20140601
  2. FLUTICASONE FUROATE [Suspect]
     Active Substance: FLUTICASONE FUROATE
     Indication: CHRONIC OBSTRUCTIVE PULMONARY DISEASE
     Dosage: 100 UG, QD
     Route: 055
     Dates: start: 20131031, end: 20150128
  3. UNKNOWN DRUG [Concomitant]
     Active Substance: UNSPECIFIED INGREDIENT
     Indication: NEUROSIS
     Dosage: 2.5 MG, OD
     Route: 048
     Dates: start: 2010
  4. ATROVENT [Concomitant]
     Active Substance: IPRATROPIUM BROMIDE
     Indication: CHRONIC OBSTRUCTIVE PULMONARY DISEASE
     Dosage: 20 MG, Q3D
     Route: 055
     Dates: start: 20131128
  5. SIMVACARD [Concomitant]
     Indication: HYPERLIPIDAEMIA
     Dosage: 40 MG, OD
     Route: 048
     Dates: start: 2012
  6. FUROSEMID [Concomitant]
     Active Substance: FUROSEMIDE
     Indication: SWELLING
     Dosage: 40 MG, OD
     Route: 048
     Dates: start: 20140721
  7. DALFAZ [Concomitant]
     Indication: BENIGN PROSTATIC HYPERPLASIA
     Dosage: 10 MG, OD
     Route: 048
     Dates: start: 2008
  8. KETOPROFEN. [Concomitant]
     Active Substance: KETOPROFEN
     Indication: FEMORAL NECK FRACTURE
     Dosage: 100 MG, OD
     Route: 048
     Dates: start: 20140708
  9. ACARD [Concomitant]
     Active Substance: ASPIRIN
     Indication: MYOCARDIAL ISCHAEMIA
     Dosage: 75 MG, OD
     Route: 048
     Dates: start: 1994
  10. ENARENAL [Concomitant]
     Active Substance: ENALAPRIL
     Indication: HYPERTENSION
     Dosage: 20 MG, BID
     Route: 048
     Dates: start: 20140601
  11. ACENOCUMAROL [Concomitant]
     Active Substance: ACENOCOUMAROL
     Indication: ATRIAL FIBRILLATION
     Dosage: 2 MG, OD
     Route: 048
     Dates: start: 20140721
  12. MILURIT [Concomitant]
     Active Substance: ALLOPURINOL
     Indication: HYPERURICAEMIA
     Dosage: 100 MG, OD
     Route: 048
     Dates: start: 2011
  13. CONTROLOC [Concomitant]
     Active Substance: PANTOPRAZOLE SODIUM
     Indication: GASTROOESOPHAGEAL REFLUX DISEASE
     Dosage: 40 MG/DAY, OD
     Route: 048
     Dates: start: 20140128
  14. GLUCOPHAGE [Concomitant]
     Active Substance: METFORMIN HYDROCHLORIDE
     Indication: DIABETES PROPHYLAXIS
     Dosage: 500 MG, OD
     Route: 048
     Dates: start: 201304
  15. EUPHYLLIN [Concomitant]
     Indication: CHRONIC OBSTRUCTIVE PULMONARY DISEASE
     Dosage: 300 MG, OD
     Route: 048
     Dates: start: 20140128
  16. NITRAZEPAM [Concomitant]
     Active Substance: NITRAZEPAM
     Indication: SLEEP DISORDER THERAPY
     Dosage: 5 MG, PRN
     Route: 048
     Dates: start: 20140721
  17. BISOCARD [Concomitant]
     Active Substance: BISOPROLOL
     Indication: MYOCARDIAL ISCHAEMIA
     Dosage: 10 MG, OD
     Route: 048
     Dates: start: 201304
  18. AMLODIPINE [Concomitant]
     Active Substance: AMLODIPINE BESYLATE
     Indication: HYPERTENSION
     Dosage: 5 MG, OD
     Route: 048
     Dates: start: 2010

REACTIONS (1)
  - Cardiopulmonary failure [Fatal]

NARRATIVE: CASE EVENT DATE: 20150128
